FAERS Safety Report 7183665-3 (Version None)
Quarter: 2010Q4

REPORT INFORMATION
  Report Type: 
  Country: None (occurrence: None)
  Receive Date: 20101222
  Receipt Date: 20101214
  Transmission Date: 20110411
  Serious: Yes (Hospitalization, Other)
  Sender: FDA-Public Use
  Company Number: US-AMGEN-USASP2010002485

PATIENT

DRUGS (9)
  1. PROCRIT [Suspect]
     Indication: NEPHROGENIC ANAEMIA
     Dosage: 10000 IU, QWK
     Route: 042
     Dates: start: 20051010, end: 20080202
  2. PROCRIT [Suspect]
     Dosage: 4000 IU, QWK
     Dates: start: 20100323, end: 20100331
  3. PROCRIT [Suspect]
     Dosage: 20000 IU, QWK
     Route: 042
     Dates: start: 20100331, end: 20100527
  4. PROCRIT [Suspect]
     Dosage: 26000 IU, QWK
     Route: 042
     Dates: start: 20100527, end: 20100610
  5. PROCRIT [Suspect]
     Dosage: 32000 IU, QWK
     Route: 042
     Dates: start: 20100601, end: 20100812
  6. PROCRIT [Suspect]
     Dosage: 40000 IU, QWK
     Route: 042
     Dates: start: 20100812, end: 20101004
  7. PROCRIT [Suspect]
     Dosage: 2700 IU, 3 TIMES/WK
     Route: 042
  8. MYCOPHENOLATE MOFETIL [Concomitant]
     Dosage: UNK
     Dates: start: 20080202
  9. TACROLIMUS [Concomitant]
     Dosage: UNK
     Dates: start: 20080202

REACTIONS (1)
  - APLASIA PURE RED CELL [None]
